FAERS Safety Report 9390390 (Version 1)
Quarter: 2013Q3

REPORT INFORMATION
  Report Type: Spontaneous
  Country: US (occurrence: None)
  Receive Date: 20130701
  Receipt Date: 20130701
  Transmission Date: 20140515
  Serious: Yes (Other)
  Sender: FDA-Public Use
  Company Number: 2013AP006260

PATIENT
  Sex: Male

DRUGS (1)
  1. ALENDRONATE SODIUM TABLETS [Suspect]
     Indication: OSTEOPOROSIS

REACTIONS (6)
  - Osteonecrosis of jaw [None]
  - Injury [None]
  - Pain [None]
  - Anxiety [None]
  - Quality of life decreased [None]
  - Condition aggravated [None]
